FAERS Safety Report 9726698 (Version 1)
Quarter: 2013Q4

REPORT INFORMATION
  Report Type: Spontaneous
  Country: US (occurrence: None)
  Receive Date: 20131202
  Receipt Date: 20131202
  Transmission Date: 20140711
  Serious: Yes (Death, Hospitalization)
  Sender: FDA-Public Use
  Company Number: None

PATIENT
  Age: 57 Year
  Sex: Male
  Weight: 99.8 kg

DRUGS (2)
  1. CYTARABINE [Suspect]
     Dosage: 24 HOUR INFUSION ENDED ON 18NOV2013
     Dates: end: 20131117
  2. IDARUBICIN [Suspect]
     Dates: end: 20131116

REACTIONS (8)
  - Pancytopenia [None]
  - Diarrhoea [None]
  - Pyrexia [None]
  - Hypotension [None]
  - Tachycardia [None]
  - Tachypnoea [None]
  - Cardiac arrest [None]
  - Pulseless electrical activity [None]
